FAERS Safety Report 9345129 (Version 2)
Quarter: 2013Q2

REPORT INFORMATION
  Report Type: Spontaneous
  Country: US (occurrence: US)
  Receive Date: 20130612
  Receipt Date: 20130627
  Transmission Date: 20140414
  Serious: Yes (Death, Hospitalization, Other)
  Sender: FDA-Public Use
  Company Number: US-BAXTER-2013BAX021414

PATIENT
  Age: 73 Year
  Sex: Female

DRUGS (4)
  1. DIANEAL LOW CALCIUM [Suspect]
     Indication: PERITONEAL DIALYSIS
     Route: 033
     Dates: start: 201012, end: 20130411
  2. DIANEAL LOW CALCIUM [Suspect]
     Route: 033
     Dates: start: 20130427, end: 20130519
  3. DIANEAL LOW CALCIUM [Suspect]
     Indication: PERITONEAL DIALYSIS
     Route: 033
     Dates: start: 201012, end: 20130411
  4. DIANEAL LOW CALCIUM [Suspect]
     Route: 033
     Dates: start: 20130427, end: 20130519

REACTIONS (9)
  - Death [Fatal]
  - Osteitis deformans [Not Recovered/Not Resolved]
  - Blood calcium increased [Recovered/Resolved]
  - Mental status changes [Recovering/Resolving]
  - Gastrointestinal haemorrhage [Not Recovered/Not Resolved]
  - Spinal disorder [Not Recovered/Not Resolved]
  - Lower limb fracture [Recovering/Resolving]
  - General physical health deterioration [Unknown]
  - Fall [Recovering/Resolving]
